FAERS Safety Report 6393211-X (Version None)
Quarter: 2009Q4

REPORT INFORMATION
  Report Type: 
  Country: None (occurrence: None)
  Receive Date: 20091008
  Receipt Date: 20090930
  Transmission Date: 20100525
  Serious: Yes (Life-Threatening)
  Sender: FDA-Public Use
  Company Number: JP-ASTRAZENECA-2009SE14003

PATIENT
  Age: 66 Year
  Sex: Male

DRUGS (3)
  1. SEROQUEL [Suspect]
     Indication: DELIRIUM
     Route: 045
     Dates: start: 20090904, end: 20090904
  2. RISPERDAL [Concomitant]
     Indication: DELIRIUM
     Route: 048
     Dates: start: 20090831, end: 20090903
  3. SERENACE [Concomitant]
     Indication: DELIRIUM
     Route: 065
     Dates: start: 20090831, end: 20090903

REACTIONS (2)
  - INCORRECT ROUTE OF DRUG ADMINISTRATION [None]
  - RESPIRATORY DEPRESSION [None]
